FAERS Safety Report 8178070-7 (Version None)
Quarter: 2012Q1

REPORT INFORMATION
  Report Type: 
  Country: None (occurrence: None)
  Receive Date: 20120301
  Receipt Date: 20120224
  Transmission Date: 20120608
  Serious: No
  Sender: FDA-Public Use
  Company Number: US-PFIZER INC-2012051433

PATIENT
  Sex: Male

DRUGS (1)
  1. SUTENT [Suspect]
     Indication: RENAL CANCER
     Dosage: 50 MG, 1 DAILY
     Route: 048
     Dates: start: 20111212

REACTIONS (4)
  - STOMATITIS [None]
  - MALAISE [None]
  - PAIN [None]
  - EYELASH DISCOLOURATION [None]
